FAERS Safety Report 13864429 (Version 1)
Quarter: 2017Q3

REPORT INFORMATION
  Report Type: Spontaneous
  Country: SE (occurrence: SE)
  Receive Date: 20170814
  Receipt Date: 20170814
  Transmission Date: 20171127
  Serious: Yes (Hospitalization)
  Sender: FDA-Public Use
  Company Number: SE-LUNDBECK-DKLU2035599

PATIENT
  Age: 6 Month
  Sex: Male

DRUGS (3)
  1. TOPAMAX [Suspect]
     Active Substance: TOPIRAMATE
     Indication: INFANTILE SPASMS
     Route: 048
     Dates: start: 20170710, end: 20170727
  2. SYNACTHEN [Suspect]
     Active Substance: COSYNTROPIN
     Indication: INFANTILE SPASMS
     Route: 065
  3. SABRILEX [Suspect]
     Active Substance: VIGABATRIN
     Indication: INFANTILE SPASMS
     Route: 048
     Dates: start: 20170524, end: 20170710

REACTIONS (4)
  - Cushing^s syndrome [Not Recovered/Not Resolved]
  - Brain oedema [Not Recovered/Not Resolved]
  - Vomiting [Not Recovered/Not Resolved]
  - Nausea [Not Recovered/Not Resolved]

NARRATIVE: CASE EVENT DATE: 20170710
